FAERS Safety Report 5677859-3 (Version None)
Quarter: 2008Q1

REPORT INFORMATION
  Report Type: 
  Country: None (occurrence: None)
  Receive Date: 20080319
  Receipt Date: 20080311
  Transmission Date: 20080703
  Serious: Yes (Other)
  Sender: FDA-Public Use
  Company Number: 2008006085

PATIENT
  Sex: Female

DRUGS (1)
  1. BENGAY ULTRA STRENGTH (MENTHOL, CAMPHOR, METHYL SALICYLATE) [Suspect]
     Dosage: UNSPECIFIED, TOPICAL
     Route: 061

REACTIONS (3)
  - EYE ROLLING [None]
  - HEADACHE [None]
  - SKIN BURNING SENSATION [None]
